FAERS Safety Report 8329792-6 (Version None)
Quarter: 2012Q2

REPORT INFORMATION
  Report Type: 
  Country: None (occurrence: None)
  Receive Date: 20120502
  Receipt Date: 20091026
  Transmission Date: 20120825
  Serious: No
  Sender: FDA-Public Use
  Company Number: US-TEVA-2009011850

PATIENT
  Sex: Female
  Weight: 36.32 kg

DRUGS (8)
  1. VITAMIN C, B, D, E [Concomitant]
     Dates: start: 20091001
  2. LEVOTHYROXINE SODIUM [Concomitant]
     Dates: start: 20091022
  3. GABAPENTIN [Concomitant]
     Dates: start: 20091022
  4. PROMETRIUM [Concomitant]
  5. ESTRADIOL [Concomitant]
     Dates: start: 20091022
  6. LEXAPRO [Concomitant]
  7. NUVIGIL [Suspect]
     Indication: NARCOLEPSY
     Dosage: 150 MILLIGRAM;
     Route: 048
     Dates: start: 20091022
  8. KLONOPIN [Concomitant]
     Dates: start: 20060101

REACTIONS (7)
  - INTENTIONAL DRUG MISUSE [None]
  - DISTURBANCE IN ATTENTION [None]
  - NAUSEA [None]
  - COUGH [None]
  - PRODUCT TASTE ABNORMAL [None]
  - HEADACHE [None]
  - HEART RATE INCREASED [None]
